FAERS Safety Report 18739758 (Version 1)
Quarter: 2021Q1

REPORT INFORMATION
  Report Type: Spontaneous
  Country: US (occurrence: US)
  Receive Date: 20210113
  Receipt Date: 20210113
  Transmission Date: 20210419
  Serious: Yes (Death)
  Sender: FDA-Public Use
  Company Number: None

PATIENT
  Age: 71 Year
  Sex: Male

DRUGS (4)
  1. ACYCLOVIR 400 [Suspect]
     Active Substance: ACYCLOVIR
  2. TENOFOVIR 300 [Suspect]
     Active Substance: TENOFOVIR
  3. ALLOPURINOL 300 [Suspect]
     Active Substance: ALLOPURINOL
  4. AMLODIPINE [Suspect]
     Active Substance: AMLODIPINE BESYLATE

REACTIONS (1)
  - Death [None]

NARRATIVE: CASE EVENT DATE: 20210112
